FAERS Safety Report 8161213-9 (Version None)
Quarter: 2012Q1

REPORT INFORMATION
  Report Type: 
  Country: None (occurrence: None)
  Receive Date: 20120224
  Receipt Date: 20120215
  Transmission Date: 20120608
  Serious: Yes (Death)
  Sender: FDA-Public Use
  Company Number: BE-ACCORD-012444

PATIENT

DRUGS (2)
  1. PACLITAXEL [Suspect]
     Dosage: ON DAY 1 AND 8 OF EACH 21-DAY CYCLE OF DOSE DENSE REGIMEN
     Route: 042
  2. CARBOPLATIN [Suspect]
     Dosage: AUC OF 4 ON DAY 1 AND 8 OF 21 DAY CYCLE IN DOSE DENSE REGIMEN
     Route: 042

REACTIONS (2)
  - NEUTROPENIC SEPSIS [None]
  - OFF LABEL USE [None]
